FAERS Safety Report 9849877 (Version 1)
Quarter: 2014Q1

REPORT INFORMATION
  Report Type: Spontaneous
  Country: FI (occurrence: FI)
  Receive Date: 20140128
  Receipt Date: 20140128
  Transmission Date: 20141002
  Serious: Yes (Disabling)
  Sender: FDA-Public Use
  Company Number: FI-PFIZER INC-2014022263

PATIENT
  Age: 57 Year
  Sex: Female

DRUGS (10)
  1. LYRICA [Suspect]
     Indication: PAIN
     Dosage: 75 MG, 1-2X/DAY
     Route: 048
     Dates: start: 20080425
  2. LYRICA [Suspect]
     Indication: NEURALGIA
     Dosage: 150 MG, 2-3X/DAY
     Route: 048
     Dates: start: 20100812
  3. LYRICA [Suspect]
     Dosage: 300 MG, 2X/DAY
     Route: 048
     Dates: start: 20100728
  4. LYRICA [Suspect]
     Dosage: 150 MG, 2-3X/DAY
     Route: 048
     Dates: start: 2010
  5. LYRICA [Suspect]
     Dosage: 175 MG, 2X/DAY
     Route: 048
     Dates: start: 20111026
  6. LYRICA [Suspect]
     Dosage: 150 MG (1-2)-3X/DAY
     Route: 048
     Dates: start: 20120126
  7. PANADOL NOVUM [Concomitant]
     Route: 048
  8. PANACOD [Concomitant]
     Route: 048
  9. MOBIC [Concomitant]
     Route: 048
  10. BURANA SLOW [Concomitant]
     Route: 048

REACTIONS (6)
  - Dry eye [Unknown]
  - Eye pain [Unknown]
  - Mydriasis [Not Recovered/Not Resolved]
  - Cataract [Not Recovered/Not Resolved]
  - Dizziness [Not Recovered/Not Resolved]
  - Balance disorder [Not Recovered/Not Resolved]
